FAERS Safety Report 6216474-X (Version None)
Quarter: 2009Q2

REPORT INFORMATION
  Report Type: 
  Country: None (occurrence: None)
  Receive Date: 20090603
  Receipt Date: 20090603
  Transmission Date: 20091009
  Serious: Yes (Other)
  Sender: FDA-Public Use
  Company Number: None

PATIENT
  Sex: Female
  Weight: 75 kg

DRUGS (1)
  1. THYROID TAB [Suspect]
     Indication: HYPOTHYROIDISM
     Dosage: FOUR TABLETS DAILY ORAL
     Route: 048
     Dates: start: 20090406, end: 20090429

REACTIONS (2)
  - HYPOTHYROIDISM [None]
  - PRODUCT SUBSTITUTION ISSUE [None]
